FAERS Safety Report 4611711-7 (Version None)
Quarter: 2005Q1

REPORT INFORMATION
  Report Type: 
  Country: None (occurrence: None)
  Receive Date: 20050317
  Receipt Date: 20020311
  Transmission Date: 20050727
  Serious: Yes (Death, Hospitalization, Other)
  Sender: FDA-Public Use
  Company Number: US-BRISTOL-MYERS SQUIBB COMPANY-11766557

PATIENT
  Age: 54 Year
  Sex: Male
  Weight: 54 kg

DRUGS (3)
  1. CISPLATIN [Suspect]
     Indication: URINARY TRACT NEOPLASM
     Dosage: TO BE GIVEN ON DAY 2.
     Route: 042
     Dates: start: 20011005, end: 20020126
  2. GEMCITABINE [Suspect]
     Indication: URINARY TRACT NEOPLASM
     Dosage: TO BE GIVEN ON DAYS 1, 8 AND 15.
     Route: 042
     Dates: start: 20011004, end: 20020222
  3. LISINOPRIL [Concomitant]
     Dosage: STARTDATE UNKNOWN.
     Dates: end: 20020304

REACTIONS (6)
  - ASCITES [None]
  - COMA [None]
  - ESCHERICHIA BACTERAEMIA [None]
  - MALIGNANT NEOPLASM PROGRESSION [None]
  - NEPHROPATHY TOXIC [None]
  - OEDEMA PERIPHERAL [None]
